FAERS Safety Report 5655459-9 (Version None)
Quarter: 2008Q1

REPORT INFORMATION
  Report Type: 
  Country: None (occurrence: None)
  Receive Date: 20080307
  Receipt Date: 20080226
  Transmission Date: 20080703
  Serious: Yes (Hospitalization)
  Sender: FDA-Public Use
  Company Number: US-ELI_LILLY_AND_COMPANY-US200710005725

PATIENT
  Sex: Male

DRUGS (13)
  1. BYETTA [Suspect]
     Dosage: 10 MG, 2/D
     Dates: start: 20050601, end: 20050701
  2. BYETTA [Suspect]
     Dosage: 10 UG, 2/D
     Dates: start: 20050701, end: 20070630
  3. BYETTA [Suspect]
     Dosage: 10 UG, 2/D
     Dates: start: 20070101
  4. ACTOS [Concomitant]
     Dosage: 30 UNK, DAILY (1/D)
  5. TRICOR [Concomitant]
     Dosage: 145 UNK, DAILY (1/D)
  6. ALLOPURINOL [Concomitant]
     Dosage: 300 UNK, DAILY (1/D)
  7. INSPRA [Concomitant]
     Dosage: 25 MG, UNKNOWN
  8. FUROSEMIDE [Concomitant]
     Dosage: 1 D/F, UNKNOWN
  9. COREG [Concomitant]
     Dosage: 25 UNK, 2/D
  10. WARFARIN SODIUM [Concomitant]
     Dosage: UNK, UNKNOWN
  11. ISOSORBIDE DINITRATE [Concomitant]
     Dosage: 20 UNK, 2/D
  12. CRESTOR [Concomitant]
     Dosage: 10 UNK, DAILY (1/D)
  13. DIGOXIN [Concomitant]
     Dosage: UNK, UNKNOWN

REACTIONS (1)
  - PANCREATITIS [None]
